FAERS Safety Report 7319933-1 (Version None)
Quarter: 2011Q1

REPORT INFORMATION
  Report Type: 
  Country: None (occurrence: None)
  Receive Date: 20110228
  Receipt Date: 20101215
  Transmission Date: 20110831
  Serious: No
  Sender: FDA-Public Use
  Company Number: A0899935A

PATIENT
  Age: 46 Year
  Sex: Female

DRUGS (6)
  1. EPITOL [Concomitant]
  2. GLIPIZIDE [Concomitant]
  3. LISINOPRIL [Concomitant]
  4. LIPITOR [Concomitant]
  5. LAMICTAL [Suspect]
     Indication: EPILEPSY
     Dosage: 150MG PER DAY
     Route: 048
  6. INSULIN [Concomitant]

REACTIONS (5)
  - CHILLS [None]
  - INCOHERENT [None]
  - HYPERTENSION [None]
  - DIZZINESS [None]
  - CLUMSINESS [None]
